FAERS Safety Report 25022138 (Version 1)
Quarter: 2025Q1

REPORT INFORMATION
  Report Type: Spontaneous
  Country: DE (occurrence: DE)
  Receive Date: 20250228
  Receipt Date: 20250228
  Transmission Date: 20250408
  Serious: Yes (Other)
  Sender: TEVA
  Company Number: DE-TEVA-VS-3301540

PATIENT
  Age: 81 Year
  Sex: Female

DRUGS (7)
  1. ENALAPRIL [Suspect]
     Active Substance: ENALAPRIL
     Indication: Product used for unknown indication
     Route: 065
  2. Xanef [Concomitant]
     Indication: Product used for unknown indication
  3. NORVASC [Concomitant]
     Active Substance: AMLODIPINE BESYLATE
     Indication: Product used for unknown indication
  4. EPLERENONE [Concomitant]
     Active Substance: EPLERENONE
     Indication: Product used for unknown indication
  5. TORSEMIDE [Concomitant]
     Active Substance: TORSEMIDE
     Indication: Product used for unknown indication
  6. Beloc [Concomitant]
     Indication: Product used for unknown indication
  7. JARDIANCE [Concomitant]
     Active Substance: EMPAGLIFLOZIN
     Indication: Product used for unknown indication

REACTIONS (10)
  - Cardiac failure [Unknown]
  - Drug ineffective [Unknown]
  - Dyspnoea [Unknown]
  - Anxiety [Unknown]
  - Sinus arrest [Unknown]
  - Multiple allergies [Unknown]
  - Blood pressure increased [Unknown]
  - Erythema [Unknown]
  - Pulmonary hypertension [Unknown]
  - Renal failure [Unknown]
